FAERS Safety Report 6864966-2 (Version None)
Quarter: 2010Q3

REPORT INFORMATION
  Report Type: 
  Country: None (occurrence: None)
  Receive Date: 20100721
  Receipt Date: 20080406
  Transmission Date: 20110219
  Serious: No
  Sender: FDA-Public Use
  Company Number: US-PFIZER INC-2008032046

PATIENT
  Sex: Female
  Weight: 54.4 kg

DRUGS (2)
  1. CHANTIX [Suspect]
     Indication: SMOKING CESSATION THERAPY
     Dates: start: 20080329, end: 20080405
  2. AMBIEN [Concomitant]
     Indication: SLEEP DISORDER

REACTIONS (3)
  - ABNORMAL DREAMS [None]
  - PRURITUS [None]
  - RASH [None]
